FAERS Safety Report 15851753 (Version 5)
Quarter: 2025Q4

REPORT INFORMATION
  Report Type: Report from Study
  Country: GB (occurrence: GB)
  Receive Date: 20190122
  Receipt Date: 20251227
  Transmission Date: 20260118
  Serious: Yes (Death, Hospitalization, Other)
  Sender: AUROBINDO
  Company Number: GB-AUROBINDO-AUR-APL-2019-002301

PATIENT
  Age: 29 Year
  Sex: Male
  Weight: 90 kg

DRUGS (1)
  1. ACETAMINOPHEN [Suspect]
     Active Substance: ACETAMINOPHEN
     Indication: Product used for unknown indication
     Dosage: 16-62 GRAMS
     Route: 061

REACTIONS (5)
  - Acute hepatic failure [Fatal]
  - Overdose [Fatal]
  - Multiple organ dysfunction syndrome [Fatal]
  - Intentional overdose [Not Recovered/Not Resolved]
  - Transplant dysfunction [Not Recovered/Not Resolved]
